FAERS Safety Report 4945997-6 (Version None)
Quarter: 2006Q1

REPORT INFORMATION
  Report Type: 
  Country: None (occurrence: None)
  Receive Date: 20060316
  Receipt Date: 20051215
  Transmission Date: 20060701
  Serious: Yes (Hospitalization, Other)
  Sender: FDA-Public Use
  Company Number: US-MERCK-0512USA02462

PATIENT
  Age: 57 Year
  Sex: Female
  Weight: 73 kg

DRUGS (2)
  1. VIOXX [Suspect]
     Indication: ARTHRALGIA
     Route: 048
     Dates: start: 19990705, end: 20000629
  2. VIOXX [Suspect]
     Indication: SWELLING
     Route: 048
     Dates: start: 19990705, end: 20000629

REACTIONS (7)
  - CHEST PAIN [None]
  - CONVULSION [None]
  - EPIDURAL ANAESTHESIA [None]
  - KNEE ARTHROPLASTY [None]
  - LIMB INJURY [None]
  - MYOCARDIAL INFARCTION [None]
  - OESOPHAGEAL SPASM [None]
